FAERS Safety Report 22310536 (Version 1)
Quarter: 2023Q2

REPORT INFORMATION
  Report Type: Spontaneous
  Country: JP (occurrence: JP)
  Receive Date: 20230511
  Receipt Date: 20230511
  Transmission Date: 20230721
  Serious: Yes (Hospitalization)
  Sender: FDA-Public Use
  Company Number: JP-MEDEXUS PHARMA, INC.-2023MED00171

PATIENT
  Age: 79 Year
  Sex: Female

DRUGS (1)
  1. METHOTREXATE [Suspect]
     Active Substance: METHOTREXATE
     Indication: Rheumatoid arthritis
     Dosage: 4.0 MG, 1X/WEEK

REACTIONS (2)
  - Small intestinal obstruction [Recovered/Resolved]
  - Lymphoproliferative disorder [Unknown]
